FAERS Safety Report 7444671-4 (Version None)
Quarter: 2011Q2

REPORT INFORMATION
  Report Type: 
  Country: None (occurrence: None)
  Receive Date: 20110429
  Receipt Date: 20110421
  Transmission Date: 20111010
  Serious: Yes (Other)
  Sender: FDA-Public Use
  Company Number: FR-NOVOPROD-327109

PATIENT
  Age: 64 Year
  Sex: Female

DRUGS (3)
  1. VICTOZA [Suspect]
     Indication: TYPE 2 DIABETES MELLITUS
     Dosage: 1.2 MG, QD
     Route: 058
     Dates: start: 20100424, end: 20110131
  2. ATENOLOL [Concomitant]
  3. STAGID [Concomitant]
     Dosage: 3 DF, QD
     Dates: start: 20070601

REACTIONS (1)
  - TACHYCARDIA [None]
